FAERS Safety Report 8096465-7 (Version None)
Quarter: 2012Q1

REPORT INFORMATION
  Report Type: 
  Country: None (occurrence: None)
  Receive Date: 20120129
  Receipt Date: 20111211
  Transmission Date: 20120608
  Serious: No
  Sender: FDA-Public Use
  Company Number: US-ABBOTT-11P-163-0883084-00

PATIENT
  Sex: Male

DRUGS (4)
  1. HUMIRA [Suspect]
  2. HUMIRA [Suspect]
     Indication: PSORIASIS
     Dates: start: 20111113
  3. HUMIRA [Suspect]
  4. FLUOXETINE [Concomitant]
     Indication: DEPRESSION

REACTIONS (4)
  - PAIN IN EXTREMITY [None]
  - INJECTION SITE PAIN [None]
  - INCORRECT DOSE ADMINISTERED [None]
  - WRONG TECHNIQUE IN DRUG USAGE PROCESS [None]
